FAERS Safety Report 7633763-2 (Version None)
Quarter: 2011Q3

REPORT INFORMATION
  Report Type: 
  Country: None (occurrence: None)
  Receive Date: 20110725
  Receipt Date: 20101222
  Transmission Date: 20111222
  Serious: Yes (Death, Hospitalization, Other)
  Sender: FDA-Public Use
  Company Number: US-BAYER-200941185NA

PATIENT
  Age: 78 Year
  Sex: Male

DRUGS (12)
  1. TRASYLOL [Suspect]
     Dosage: 1 ML, ONCE TEST DOSE
  2. LOVASTATIN [Concomitant]
     Dosage: 25 MG, QD
     Route: 048
  3. PLAVIX [Concomitant]
     Dosage: 75-300 MG DAILY
     Route: 048
     Dates: start: 20040927
  4. BUMEX [Concomitant]
     Dosage: 1 MG
     Route: 048
  5. TRASYLOL [Suspect]
     Indication: CORONARY ARTERY BYPASS
     Dosage: 2000000 U, UNK
     Route: 042
     Dates: start: 20041001
  6. ISOSORBIDE MONONITRATE [Concomitant]
     Dosage: 30 MG, QD
     Route: 048
  7. NITROGLYCERIN [Concomitant]
     Dosage: UNK
     Route: 048
     Dates: start: 20040930
  8. AVAPRO [Concomitant]
     Dosage: 100 MG, BID
     Route: 048
  9. AMIODARONE HCL [Concomitant]
     Dosage: 200 MG, QD
     Route: 048
  10. LOSARTAN POTASSIUM [Concomitant]
     Dosage: 20 MG, BID
     Route: 048
  11. ASPIRIN [Concomitant]
     Dosage: 81 MG, QD
     Route: 048
  12. GLIPIZIDE [Concomitant]
     Dosage: 5 MG, BID
     Route: 048

REACTIONS (14)
  - CARDIOGENIC SHOCK [None]
  - PAIN [None]
  - MULTI-ORGAN FAILURE [None]
  - STRESS [None]
  - UNEVALUABLE EVENT [None]
  - FEAR [None]
  - RENAL INJURY [None]
  - EMOTIONAL DISTRESS [None]
  - ANHEDONIA [None]
  - DEATH [None]
  - RENAL IMPAIRMENT [None]
  - RENAL FAILURE [None]
  - ANXIETY [None]
  - INJURY [None]
